FAERS Safety Report 5318804-X (Version None)
Quarter: 2007Q2

REPORT INFORMATION
  Report Type: 
  Country: None (occurrence: None)
  Receive Date: 20070504
  Receipt Date: 20070504
  Transmission Date: 20071010
  Serious: Yes (Disabling)
  Sender: FDA-Public Use
  Company Number: None

PATIENT
  Age: 49 Year
  Sex: Male

DRUGS (8)
  1. LISINOPRIL [Suspect]
     Indication: HYPERTENSION
     Dates: start: 20070213, end: 20070319
  2. LISINOPRIL [Suspect]
     Indication: HYPERTENSION
     Dates: start: 20070319, end: 20070326
  3. EPIPEN [Concomitant]
  4. LISINOPRIL [Concomitant]
  5. QUETIAPINE FUMARATE [Concomitant]
  6. SERTRALINE [Concomitant]
  7. AMITRIPTYLINE HCL [Concomitant]
  8. IBUPROFEN [Concomitant]

REACTIONS (2)
  - LIP SWELLING [None]
  - PARAESTHESIA ORAL [None]
